FAERS Safety Report 21748031 (Version 4)
Quarter: 2023Q1

REPORT INFORMATION
  Report Type: Spontaneous
  Country: US (occurrence: US)
  Receive Date: 20221219
  Receipt Date: 20230123
  Transmission Date: 20230417
  Serious: No
  Sender: FDA-Public Use
  Company Number: US-PFIZER INC-202201364278

PATIENT
  Age: 63 Year
  Sex: Male
  Weight: 102.97 kg

DRUGS (3)
  1. PAXLOVID [Suspect]
     Active Substance: NIRMATRELVIR\RITONAVIR
     Indication: COVID-19 treatment
     Dosage: UNK
     Dates: start: 20221207, end: 202212
  2. TAMIFLU [Suspect]
     Active Substance: OSELTAMIVIR PHOSPHATE
     Dosage: UNK
  3. CEFDINIR [Suspect]
     Active Substance: CEFDINIR
     Dosage: UNK

REACTIONS (7)
  - COVID-19 [Unknown]
  - Disease recurrence [Unknown]
  - Diarrhoea [Unknown]
  - Cough [Unknown]
  - Dysgeusia [Unknown]
  - Hypoaesthesia [Unknown]
  - Faeces discoloured [Unknown]

NARRATIVE: CASE EVENT DATE: 20221201
